FAERS Safety Report 18249067 (Version 1)
Quarter: 2020Q3

REPORT INFORMATION
  Report Type: Spontaneous
  Country: US (occurrence: US)
  Receive Date: 20200909
  Receipt Date: 20200909
  Transmission Date: 20201103
  Serious: No
  Sender: FDA-Public Use
  Company Number: US-PERRIGO-20US011592

PATIENT
  Age: 34 Year
  Sex: Male
  Weight: 90.7 kg

DRUGS (3)
  1. ALBUTEROL SULFATE. [Suspect]
     Active Substance: ALBUTEROL SULFATE
     Dosage: 2 TO 6 PARTIAL SPRAYS, Q 4 HOURS
     Route: 055
     Dates: start: 20200718, end: 20200718
  2. ALBUTEROL SULFATE. [Suspect]
     Active Substance: ALBUTEROL SULFATE
     Indication: ASTHMA
     Dosage: 2 PARTIAL SPRAYS, Q 4 HOURS
     Route: 055
     Dates: start: 20200714, end: 20200717
  3. ALBUTEROL SULFATE. [Suspect]
     Active Substance: ALBUTEROL SULFATE
     Dosage: 180 MCG, Q 4 HOURS, PRN
     Route: 055
     Dates: start: 20200720

REACTIONS (3)
  - Incorrect dose administered [Recovered/Resolved]
  - Device delivery system issue [Recovered/Resolved]
  - Productive cough [Recovered/Resolved]

NARRATIVE: CASE EVENT DATE: 20200714
